FAERS Safety Report 13000807 (Version 1)
Quarter: 2016Q4

REPORT INFORMATION
  Report Type: Other
  Country: US (occurrence: US)
  Receive Date: 20161206
  Receipt Date: 20161206
  Transmission Date: 20170207
  Serious: Yes (Other)
  Sender: FDA-Public Use
  Company Number: US-SHIRE-US201617902

PATIENT
  Age: 66 Year
  Sex: Female

DRUGS (5)
  1. SYNTHROID [Concomitant]
     Active Substance: LEVOTHYROXINE SODIUM
     Indication: THYROID THERAPY
     Dosage: UNK, UNKNOWN
     Route: 065
  2. XIIDRA [Suspect]
     Active Substance: LIFITEGRAST
     Indication: DRY EYE
     Dosage: 1 GTT(EACH EYE), 2X/DAY:BID(12 HOURS APART)
     Route: 047
     Dates: start: 20161115
  3. SPIRONOLACTONE. [Concomitant]
     Active Substance: SPIRONOLACTONE
     Indication: CARDIAC DISORDER
     Dosage: UNK UNK, UNKNOWN
     Route: 065
  4. ATENOLOL. [Concomitant]
     Active Substance: ATENOLOL
     Indication: CARDIAC DISORDER
     Dosage: UNK, UNKNOWN
     Route: 065
  5. ATIVAN [Concomitant]
     Active Substance: LORAZEPAM
     Indication: ANXIETY
     Dosage: UNK, UNKNOWN
     Route: 065

REACTIONS (4)
  - Blood glucose increased [Recovering/Resolving]
  - Fatigue [Unknown]
  - Feeling abnormal [Unknown]
  - Dysgeusia [Unknown]

NARRATIVE: CASE EVENT DATE: 20161115
